FAERS Safety Report 7558628-6 (Version None)
Quarter: 2011Q2

REPORT INFORMATION
  Report Type: 
  Country: None (occurrence: None)
  Receive Date: 20110621
  Receipt Date: 20110613
  Transmission Date: 20111010
  Serious: No
  Sender: FDA-Public Use
  Company Number: US-BIOGENIDEC-2010BI030556

PATIENT
  Sex: Female

DRUGS (2)
  1. TYSABRI [Suspect]
     Indication: MULTIPLE SCLEROSIS
     Route: 042
     Dates: start: 20100625
  2. AVONEX [Concomitant]
     Indication: MULTIPLE SCLEROSIS
     Route: 030

REACTIONS (12)
  - EYE PRURITUS [None]
  - LOSS OF CONTROL OF LEGS [None]
  - EYE INFECTION [None]
  - EYE IRRITATION [None]
  - FATIGUE [None]
  - OCULAR HYPERAEMIA [None]
  - MIGRAINE [None]
  - MENOPAUSAL SYMPTOMS [None]
  - DRY EYE [None]
  - MUSCULAR WEAKNESS [None]
  - HEADACHE [None]
  - DIZZINESS [None]
